FAERS Safety Report 19900631 (Version 1)
Quarter: 2021Q3

REPORT INFORMATION
  Report Type: Spontaneous
  Country: US (occurrence: US)
  Receive Date: 20210929
  Receipt Date: 20210929
  Transmission Date: 20211014
  Serious: Yes (Hospitalization)
  Sender: FDA-Public Use
  Company Number: US-PFIZER INC-2021716993

PATIENT
  Age: 67 Year
  Sex: Female

DRUGS (1)
  1. IBRANCE [Suspect]
     Active Substance: PALBOCICLIB
     Indication: TRIPLE NEGATIVE BREAST CANCER
     Dosage: 100 MG
     Dates: start: 20210615

REACTIONS (7)
  - Nausea [Unknown]
  - Ascites [Unknown]
  - Fatigue [Unknown]
  - Off label use [Unknown]
  - Ulcer [Unknown]
  - Gastrointestinal disorder [Unknown]
  - Internal haemorrhage [Unknown]
